FAERS Safety Report 8225181-3 (Version None)
Quarter: 2012Q1

REPORT INFORMATION
  Report Type: 
  Country: None (occurrence: None)
  Receive Date: 20120321
  Receipt Date: 20120310
  Transmission Date: 20120608
  Serious: Yes (Death)
  Sender: FDA-Public Use
  Company Number: IT-ALEXION PHARMACEUTICALS INC.-A201200115

PATIENT
  Sex: Male

DRUGS (17)
  1. CORDARONE [Concomitant]
     Dosage: 150 MG, X 3
  2. TRAMADOL HCL [Concomitant]
     Dosage: 100 MG, UNK
  3. CIPROFLOXACIN HCL [Concomitant]
     Dosage: 500 MG, X 3
  4. MIDAZOLAM [Concomitant]
     Dosage: 480 MG, UNK
  5. SOLIRIS [Suspect]
     Indication: MALIGNANT ATROPHIC PAPULOSIS
     Dosage: 900 MG, QW
     Route: 042
     Dates: start: 20110310, end: 20110401
  6. DIFLUCAN [Concomitant]
     Dosage: 400 MG, UNK
  7. SOLIRIS [Suspect]
     Dosage: 1200 MG, Q2W
     Route: 042
     Dates: start: 20110101
  8. PRILOSEC [Concomitant]
     Dosage: 40 MG, UNK
  9. LASIX [Concomitant]
     Dosage: 20 MG, X 3
  10. INDERAL [Concomitant]
     Dosage: 40 MG, X 4
  11. MORFINA [Concomitant]
     Dosage: 20 MG, UNK
  12. ENOXAPARIN SODIUM [Concomitant]
     Dosage: 5000 UI X 2
  13. LANOXIN [Concomitant]
     Dosage: 0.125 X 3
  14. GARDENALE [Concomitant]
     Dosage: 100 MG, X 2
  15. SOLIRIS [Suspect]
     Dosage: 1500 MG, QW
     Route: 042
     Dates: start: 20110414, end: 20110620
  16. COLISTINAT [Concomitant]
     Dosage: 500.000 UI X 4
  17. ALBUMIN (HUMAN) [Concomitant]
     Dosage: 20%, 50 ML X 2

REACTIONS (4)
  - HYPOVOLAEMIC SHOCK [None]
  - COMA [None]
  - HAEMORRHAGE [None]
  - CENTRAL NERVOUS SYSTEM LESION [None]
